APPROVED DRUG PRODUCT: ZOLPIDEM TARTRATE
Active Ingredient: ZOLPIDEM TARTRATE
Strength: 6.25MG
Dosage Form/Route: TABLET, EXTENDED RELEASE;ORAL
Application: A078179 | Product #002
Applicant: ACTAVIS ELIZABETH LLC AN INDIRECT WHOLLY OWNED SUB OF TEVA PHARMACEUTICALS USA INC
Approved: Oct 13, 2010 | RLD: No | RS: No | Type: DISCN